FAERS Safety Report 5583216-0 (Version None)
Quarter: 2008Q1

REPORT INFORMATION
  Report Type: 
  Country: None (occurrence: None)
  Receive Date: 20080103
  Receipt Date: 20080103
  Transmission Date: 20080703
  Serious: Yes (Hospitalization)
  Sender: FDA-Public Use
  Company Number: None

PATIENT
  Sex: Male

DRUGS (1)
  1. VYTORIN [Suspect]
     Indication: HYPERCHOLESTEROLAEMIA
     Dosage: 10/10  1ST DOSE  PO
     Route: 048
     Dates: start: 20070517, end: 20070517

REACTIONS (2)
  - CHROMATURIA [None]
  - MYALGIA [None]
